FAERS Safety Report 9383959 (Version 2)
Quarter: 2013Q4

REPORT INFORMATION
  Report Type: Spontaneous
  Country: US (occurrence: US)
  Receive Date: 20130705
  Receipt Date: 20131011
  Transmission Date: 20140711
  Serious: No
  Sender: FDA-Public Use
  Company Number: US-B.I. PHARMACEUTICALS,INC./RIDGEFIELD-2013-BI-19080BP

PATIENT
  Age: 85 Year
  Sex: Female
  Weight: 48 kg

DRUGS (2)
  1. COMBIVENT [Suspect]
     Indication: ASTHMA
     Dosage: STRENGTH: 20 MCG / 100 MCG; DAILY DOSE: 20 MCG/ 100MCG
     Route: 055
     Dates: start: 201306
  2. COMBIVENT [Suspect]
     Indication: ASTHMA
     Dosage: STRENGTH: 18 MCG / 103 MCG; DAILY DOSE: 36 MCG/206 MCG
     Route: 055
     Dates: end: 20130604

REACTIONS (6)
  - Dyspnoea [Recovered/Resolved]
  - Cough [Recovered/Resolved]
  - Off label use [Recovered/Resolved]
  - Underdose [Recovered/Resolved]
  - Off label use [Recovered/Resolved]
  - Prescribed overdose [Recovered/Resolved]
